FAERS Safety Report 21125257 (Version 1)
Quarter: 2022Q3

REPORT INFORMATION
  Report Type: Spontaneous
  Country: US (occurrence: None)
  Receive Date: 20220725
  Receipt Date: 20220725
  Transmission Date: 20221027
  Serious: Yes (Hospitalization)
  Sender: FDA-Public Use
  Company Number: None

PATIENT
  Age: 77 Year
  Sex: Male

DRUGS (1)
  1. MYCOPHENOLATE MOFETIL [Suspect]
     Active Substance: MYCOPHENOLATE MOFETIL
     Indication: Pulmonary arterial hypertension
     Dosage: 1000MG ONCE DAILY BY MOUTH
     Route: 048
     Dates: start: 20191114

REACTIONS (1)
  - Pulmonary arterial hypertension [None]

NARRATIVE: CASE EVENT DATE: 20220722
